FAERS Safety Report 22299845 (Version 1)
Quarter: 2023Q2

REPORT INFORMATION
  Report Type: Spontaneous
  Country: US (occurrence: None)
  Receive Date: 20230509
  Receipt Date: 20230509
  Transmission Date: 20230722
  Serious: No
  Sender: FDA-Public Use
  Company Number: None

PATIENT

DRUGS (2)
  1. HUMALOG [Suspect]
     Active Substance: INSULIN LISPRO
  2. LEVEMIR [Suspect]
     Active Substance: INSULIN DETEMIR

REACTIONS (5)
  - Product dispensing error [None]
  - Wrong product administered [None]
  - Blood glucose fluctuation [None]
  - Headache [None]
  - Tremor [None]
